FAERS Safety Report 9678840 (Version 5)
Quarter: 2013Q4

REPORT INFORMATION
  Report Type: Report from Study
  Country: CA (occurrence: CA)
  Receive Date: 20131108
  Receipt Date: 20131219
  Transmission Date: 20140711
  Serious: Yes (Hospitalization)
  Sender: FDA-Public Use
  Company Number: CA-JNJFOC-20131010883

PATIENT
  Age: 60 Year
  Sex: Male
  Weight: 77 kg

DRUGS (4)
  1. REMICADE [Suspect]
     Indication: CROHN^S DISEASE
     Dosage: DOSE: 5 MG/KG
     Route: 042
     Dates: start: 20130924
  2. REMICADE [Suspect]
     Indication: CROHN^S DISEASE
     Dosage: WEEK 6, DOSE: 5 MG/KG ONLY RECEIVED WEEK 0, 2
     Route: 042
     Dates: start: 20130910
  3. IMURAN [Concomitant]
     Route: 065
     Dates: start: 201309
  4. PREDNISONE [Concomitant]
     Route: 065

REACTIONS (1)
  - Crohn^s disease [Unknown]
